FAERS Safety Report 20277755 (Version 3)
Quarter: 2022Q1

REPORT INFORMATION
  Report Type: Spontaneous
  Country: CZ (occurrence: CZ)
  Receive Date: 20220103
  Receipt Date: 20220328
  Transmission Date: 20220423
  Serious: Yes (Other)
  Sender: FDA-Public Use
  Company Number: CZ-GLENMARK PHARMACEUTICALS-2021GMK069303

PATIENT
  Age: 14 Year
  Sex: Male
  Weight: 37 kg

DRUGS (7)
  1. ATOMOXETINE [Suspect]
     Active Substance: ATOMOXETINE
     Indication: Product used for unknown indication
     Dosage: UNK
     Route: 065
  2. IBANDRONIC ACID [Suspect]
     Active Substance: IBANDRONIC ACID
     Indication: Bone density abnormal
     Dosage: 150 MILLIGRAM (150 MILLIGRAM, ONCE MONTHLY)
     Route: 048
  3. IBANDRONIC ACID [Suspect]
     Active Substance: IBANDRONIC ACID
     Indication: Osteogenesis imperfecta
  4. CALCIUM [Concomitant]
     Active Substance: CALCIUM
     Indication: Osteogenesis imperfecta
     Dosage: UNK, ONCE A DAY (1000-1500 MILLIGRAM, QD)
     Route: 048
  5. CALCIUM [Concomitant]
     Active Substance: CALCIUM
     Dosage: 1500 INTERNATIONAL UNIT, ONCE A DAY(1000?1500 MG/DAY)
     Route: 048
  6. CHOLECALCIFEROL [Concomitant]
     Active Substance: CHOLECALCIFEROL
     Indication: Osteogenesis imperfecta
     Dosage: UNK, ONCE A DAY (1000?1500 IU, QD)
     Route: 065
  7. CHOLECALCIFEROL [Concomitant]
     Active Substance: CHOLECALCIFEROL
     Dosage: 1500 INTERNATIONAL UNIT, ONCE A DAY(1000?1500 IU/DAY)
     Route: 048

REACTIONS (3)
  - Leukopenia [Recovered/Resolved]
  - Product use issue [Unknown]
  - Off label use [Unknown]
